FAERS Safety Report 5239795-6 (Version None)
Quarter: 2007Q1

REPORT INFORMATION
  Report Type: 
  Country: None (occurrence: None)
  Receive Date: 20070212
  Receipt Date: 20070127
  Transmission Date: 20070707
  Serious: Yes (Hospitalization)
  Sender: FDA-Public Use
  Company Number: 2007BI001969

PATIENT
  Age: 26 Year
  Sex: Female
  Weight: 55 kg

DRUGS (5)
  1. AVONEX [Suspect]
     Indication: MULTIPLE SCLEROSIS
     Dosage: 30 UG;QW;IM
     Route: 030
     Dates: start: 20060228, end: 20070118
  2. AMITRIPTYLINE HCL [Concomitant]
  3. GABAPENTIN [Concomitant]
  4. PARACETAMOL [Concomitant]
  5. TEMAZEPAM [Concomitant]

REACTIONS (9)
  - BODY TEMPERATURE INCREASED [None]
  - DEPRESSION [None]
  - HEADACHE [None]
  - INFECTION [None]
  - MOTOR DYSFUNCTION [None]
  - MUSCLE SPASMS [None]
  - NAUSEA [None]
  - STOMACH DISCOMFORT [None]
  - TREMOR [None]
